FAERS Safety Report 4869684-8 (Version None)
Quarter: 2005Q4

REPORT INFORMATION
  Report Type: 
  Country: None (occurrence: None)
  Receive Date: 20051223
  Receipt Date: 20051213
  Transmission Date: 20060501
  Serious: Yes (Hospitalization)
  Sender: FDA-Public Use
  Company Number: HQWYE707527FEB03

PATIENT
  Age: 5 Year
  Sex: Female

DRUGS (2)
  1. RAPAMUNE [Suspect]
     Indication: IMMUNOSUPPRESSION
     Dosage: 1.5 MG 1X PER 1 DAY
     Route: 048
     Dates: start: 20011209
  2. RAPAMUNE [Suspect]
     Indication: PROPHYLAXIS AGAINST TRANSPLANT REJECTION
     Dosage: 1.5 MG 1X PER 1 DAY
     Route: 048
     Dates: start: 20011209

REACTIONS (1)
  - FAILURE TO THRIVE [None]
